FAERS Safety Report 8730172 (Version 4)
Quarter: 2012Q4

REPORT INFORMATION
  Report Type: 
  Country: US (occurrence: US)
  Receive Date: 20120817
  Receipt Date: 20121116
  Transmission Date: 20130627
  Serious: Yes (Hospitalization)
  Sender: FDA-Public Use
  Company Number: US-ACTELION-A-NJ2012-70099

PATIENT
  Age: 59 Year
  Sex: Female

DRUGS (9)
  1. TRACLEER [Suspect]
     Indication: PULMONARY ARTERIAL HYPERTENSION
     Dosage: 125 mg, bid
     Route: 048
  2. TRACLEER [Suspect]
     Dosage: UNK
     Route: 048
     Dates: start: 20020507
  3. VELETRI [Suspect]
     Indication: PULMONARY ARTERIAL HYPERTENSION
     Dosage: 42.6 ng/kg, per min
     Route: 041
     Dates: start: 20120116
  4. COUMADIN [Suspect]
     Dosage: UNK
  5. FUROSEMIDE [Concomitant]
     Dosage: 80 mg, od
     Route: 048
  6. KLOR-CON [Concomitant]
     Dosage: 20 mEq, od
     Route: 048
  7. LANSOPRAZOLE [Concomitant]
     Dosage: 30 mg, bid
     Route: 048
  8. LORATADINE [Concomitant]
     Dosage: 10 mg, od
     Route: 048
  9. SPIRONOLACTONE [Concomitant]
     Dosage: 25 mg, bid
     Route: 048

REACTIONS (11)
  - Gastroduodenitis [Recovered/Resolved]
  - Nausea [Recovered/Resolved]
  - Vomiting [Recovered/Resolved]
  - Decreased appetite [Recovered/Resolved]
  - Weight decreased [Recovered/Resolved]
  - Hyperthyroidism [Recovered/Resolved]
  - Thyroid function test abnormal [Recovered/Resolved]
  - International normalised ratio increased [Recovered/Resolved]
  - Anticoagulation drug level above therapeutic [Recovered/Resolved]
  - Hiatus hernia [Unknown]
  - Hypophagia [None]
